FAERS Safety Report 20419171 (Version 3)
Quarter: 2022Q4

REPORT INFORMATION
  Report Type: Report from Study
  Country: CA (occurrence: CA)
  Receive Date: 20220203
  Receipt Date: 20221018
  Transmission Date: 20230113
  Serious: Yes (Hospitalization, Other)
  Sender: FDA-Public Use
  Company Number: CA-JNJFOC-20220112425

PATIENT
  Age: 41 Year
  Sex: Female
  Weight: 57 kg

DRUGS (3)
  1. REMICADE [Suspect]
     Active Substance: INFLIXIMAB
     Indication: Colitis ulcerative
     Dosage: ON 10-JAN-2022, THE PATIENT RECEIVED INFUSION.
     Route: 042
     Dates: start: 20210827
  2. REMICADE [Suspect]
     Active Substance: INFLIXIMAB
     Route: 040
  3. REMICADE [Suspect]
     Active Substance: INFLIXIMAB
     Dosage: DOSE ROUNDED UP TO COMPLETE VIAL (300MG) AT WEEK 0,4 THEN EVERY 8 WEEKS
     Route: 042

REACTIONS (4)
  - Intestinal tuberculosis [Unknown]
  - Melaena [Unknown]
  - Colitis ulcerative [Unknown]
  - Off label use [Unknown]

NARRATIVE: CASE EVENT DATE: 20211201
